FAERS Safety Report 5752300-0 (Version None)
Quarter: 2008Q2

REPORT INFORMATION
  Report Type: 
  Country: None (occurrence: None)
  Receive Date: 20080529
  Receipt Date: 20080519
  Transmission Date: 20081010
  Serious: Yes (Congenital Anomaly)
  Sender: FDA-Public Use
  Company Number: US-AMGEN-US278426

PATIENT
  Weight: 2.797 kg

DRUGS (12)
  1. ENBREL [Suspect]
     Route: 064
     Dates: start: 20070607, end: 20071204
  2. VITAMIN TAB [Concomitant]
     Route: 064
     Dates: start: 20070401, end: 20071204
  3. TYLENOL [Concomitant]
     Route: 064
     Dates: start: 20070309, end: 20071015
  4. PLAQUENIL [Concomitant]
     Route: 064
     Dates: start: 20070309, end: 20070616
  5. ALBUTEROL [Concomitant]
     Route: 064
     Dates: start: 20070501, end: 20070515
  6. AMOXICILLIN [Concomitant]
     Route: 064
     Dates: start: 20070501, end: 20070515
  7. PREDNISONE TAB [Concomitant]
     Route: 064
     Dates: start: 20070309, end: 20070607
  8. PREDNISONE TAB [Concomitant]
     Route: 064
     Dates: start: 20070608, end: 20070616
  9. TYLENOL W/ CODEINE [Concomitant]
     Route: 064
     Dates: start: 20070506, end: 20070520
  10. PERCOCET [Concomitant]
     Route: 064
     Dates: start: 20070309, end: 20070610
  11. OMEPRAZOLE [Concomitant]
     Route: 064
     Dates: start: 20070309, end: 20071204
  12. ROLAIDS [Concomitant]
     Route: 064
     Dates: start: 20070309, end: 20071204

REACTIONS (1)
  - VOLVULUS [None]
